FAERS Safety Report 6358745-2 (Version None)
Quarter: 2009Q3

REPORT INFORMATION
  Report Type: 
  Country: None (occurrence: None)
  Receive Date: 20090916
  Receipt Date: 20090812
  Transmission Date: 20100115
  Serious: No
  Sender: FDA-Public Use
  Company Number: US-ABBOTT-09P-163-0591359-00

PATIENT
  Sex: Male
  Weight: 90.8 kg

DRUGS (4)
  1. TRILIPIX [Suspect]
     Indication: HIGH DENSITY LIPOPROTEIN DECREASED
     Dates: start: 20090301, end: 20090812
  2. AVALADE [Concomitant]
     Indication: HYPERTENSION
  3. SIMVASTATIN [Concomitant]
     Indication: HIGH DENSITY LIPOPROTEIN DECREASED
  4. COUMADIN [Concomitant]
     Indication: FACTOR V DEFICIENCY

REACTIONS (1)
  - HIGH DENSITY LIPOPROTEIN DECREASED [None]
